FAERS Safety Report 8809593 (Version 2)
Quarter: 2015Q1

REPORT INFORMATION
  Report Type: Report from Study
  Country: US (occurrence: US)
  Receive Date: 20120926
  Receipt Date: 20150313
  Transmission Date: 20150721
  Serious: Yes (Death, Hospitalization)
  Sender: FDA-Public Use
  Company Number: US-ROCHE-1123537

PATIENT
  Age: 79 Year
  Sex: Female

DRUGS (11)
  1. 5-FLUOROURACIL [Concomitant]
     Active Substance: FLUOROURACIL
     Route: 042
  2. LEUCOVORIN [Concomitant]
     Active Substance: LEUCOVORIN
     Route: 042
  3. AVASTIN [Suspect]
     Active Substance: BEVACIZUMAB
     Indication: COLON CANCER
     Route: 042
     Dates: start: 20070519
  4. ALOXI [Concomitant]
     Active Substance: PALONOSETRON HYDROCHLORIDE
     Route: 042
  5. DEXAMETHASONE. [Concomitant]
     Active Substance: DEXAMETHASONE
  6. DIPHENHYDRAMINE [Concomitant]
     Active Substance: DIPHENHYDRAMINE
  7. SANDOSTATIN [Concomitant]
     Active Substance: OCTREOTIDE ACETATE
  8. IMODIUM [Concomitant]
     Active Substance: LOPERAMIDE HYDROCHLORIDE
  9. ELOXATIN [Concomitant]
     Active Substance: OXALIPLATIN
     Route: 065
  10. ELOXATIN [Concomitant]
     Active Substance: OXALIPLATIN
     Route: 042
  11. HERCEPTIN [Suspect]
     Active Substance: TRASTUZUMAB
     Indication: PRODUCT USED FOR UNKNOWN INDICATION
     Route: 065

REACTIONS (7)
  - Muscular weakness [Unknown]
  - Death [Fatal]
  - Tremor [Unknown]
  - Malaise [Unknown]
  - Dizziness [Unknown]
  - Nasopharyngitis [Unknown]
  - Breast pain [Unknown]

NARRATIVE: CASE EVENT DATE: 20071222
